FAERS Safety Report 14648932 (Version 1)
Quarter: 2018Q1

REPORT INFORMATION
  Report Type: Spontaneous
  Country: JP (occurrence: JP)
  Receive Date: 20180316
  Receipt Date: 20180316
  Transmission Date: 20180509
  Serious: Yes (Other)
  Sender: FDA-Public Use
  Company Number: JP-BAUSCH-BL-2018-006553

PATIENT
  Age: 68 Year
  Sex: Female
  Weight: 48 kg

DRUGS (3)
  1. DEXAMETHASONE. [Suspect]
     Active Substance: DEXAMETHASONE
     Indication: PLASMA CELL MYELOMA
     Dosage: DEX 40 MG/BODY, ON DAYS1-4, 9-12, 17-20, EVERY 4-WK CYCLE; 3 CYCLICAL
     Route: 065
     Dates: start: 20150619, end: 20150905
  2. VINCRISTINE [Concomitant]
     Active Substance: VINCRISTINE
     Indication: PLASMA CELL MYELOMA
     Dosage: 0.4 MG/BODY; 3 CYCLICAL
     Dates: start: 20150619, end: 20150905
  3. DOXORUBICIN [Concomitant]
     Active Substance: DOXORUBICIN
     Indication: PLASMA CELL MYELOMA
     Dosage: 9 MG/M2, CONTINUOUS INTRAVENOUS INFUSION, ON DAYS 1-4; 3 CYCLICAL
     Route: 042
     Dates: start: 20150619, end: 20150905

REACTIONS (1)
  - Diabetes mellitus [Unknown]
